FAERS Safety Report 4709300-9 (Version None)
Quarter: 2005Q3

REPORT INFORMATION
  Report Type: 
  Country: None (occurrence: None)
  Receive Date: 20050708
  Receipt Date: 20050706
  Transmission Date: 20060218
  Serious: Yes (Death)
  Sender: FDA-Public Use
  Company Number: US-BRISTOL-MYERS SQUIBB COMPANY-13027222

PATIENT
  Age: 56 Year
  Sex: Male

DRUGS (4)
  1. CARBOPLATIN [Suspect]
     Dates: start: 20050531, end: 20050531
  2. SULBACTAM [Concomitant]
  3. CEFOPERAZONE SODIUM [Concomitant]
  4. METRONIDAZOLE [Concomitant]

REACTIONS (1)
  - PNEUMONIA [None]
